FAERS Safety Report 18191361 (Version 1)
Quarter: 2020Q3

REPORT INFORMATION
  Report Type: Spontaneous
  Country: JP (occurrence: JP)
  Receive Date: 20200825
  Receipt Date: 20200825
  Transmission Date: 20201103
  Serious: Yes (Hospitalization, Other)
  Sender: FDA-Public Use
  Company Number: JP-009507513-2008JPN001615J

PATIENT
  Age: 21 Year
  Sex: Male
  Weight: 66 kg

DRUGS (2)
  1. PROPECIA [Suspect]
     Active Substance: FINASTERIDE
     Indication: ANDROGENETIC ALOPECIA
     Dosage: 0.4 MG/DAY
     Route: 048
  2. MINOXIDIL. [Concomitant]
     Active Substance: MINOXIDIL
     Indication: ANDROGENETIC ALOPECIA
     Dosage: 4 MG/DAY
     Route: 048

REACTIONS (1)
  - Haemorrhagic cerebral infarction [Unknown]
